FAERS Safety Report 5529278-8 (Version None)
Quarter: 2007Q4

REPORT INFORMATION
  Report Type: 
  Country: None (occurrence: None)
  Receive Date: 20071119
  Receipt Date: 20070918
  Transmission Date: 20080405
  Serious: No
  Sender: FDA-Public Use
  Company Number: TPA2007A01936

PATIENT
  Age: 55 Year
  Sex: Female
  Weight: 70.3075 kg

DRUGS (14)
  1. ROZEREM [Suspect]
     Indication: INITIAL INSOMNIA
     Dosage: 8 MG, HS, PER ORAL
     Route: 048
     Dates: start: 20070917, end: 20070918
  2. ROZEREM [Suspect]
     Indication: MIDDLE INSOMNIA
     Dosage: 8 MG, HS, PER ORAL
     Route: 048
     Dates: start: 20070917, end: 20070918
  3. NITROGLYCERIN (ALL OTHER THERAPEUTIC PRODUCTS) [Concomitant]
  4. KLOR-CON [Concomitant]
  5. IBUPROFEN (IBUPROFEN) [Concomitant]
  6. SIMVASTATIN (SIMVASTATIN) (TABLETS) [Concomitant]
  7. BUPROPION HCL [Concomitant]
  8. PLAVIX [Concomitant]
  9. ISOSORBIDE (ISOSORBIDE) [Concomitant]
  10. DIOVAN [Concomitant]
  11. NADOLOL [Concomitant]
  12. FUROSEMIDE [Concomitant]
  13. NITROTRANSDERM (GLYCERYL TRINITRATE) (POULTICE OR PATCH) [Concomitant]
  14. TEMAZEPAM [Concomitant]

REACTIONS (2)
  - HEADACHE [None]
  - INITIAL INSOMNIA [None]
